FAERS Safety Report 9747317 (Version 2)
Quarter: 2013Q4

REPORT INFORMATION
  Report Type: Spontaneous
  Country: RS (occurrence: RS)
  Receive Date: 20131212
  Receipt Date: 20131221
  Transmission Date: 20140711
  Serious: Yes (Death, Hospitalization)
  Sender: FDA-Public Use
  Company Number: RS-ROCHE-1317393

PATIENT
  Sex: Female

DRUGS (2)
  1. XELODA [Suspect]
     Indication: COLORECTAL CANCER METASTATIC
     Route: 048
     Dates: start: 20131107, end: 20131113
  2. XELODA [Suspect]
     Route: 048
     Dates: start: 20131114, end: 20131122

REACTIONS (9)
  - Decreased appetite [Fatal]
  - Diarrhoea [Fatal]
  - Skin disorder [Fatal]
  - Genital haemorrhage [Fatal]
  - Leukopenia [Fatal]
  - Neutropenia [Fatal]
  - Thrombocytopenia [Fatal]
  - Pyrexia [Fatal]
  - Febrile neutropenia [Fatal]
